FAERS Safety Report 8385986-5 (Version None)
Quarter: 2012Q2

REPORT INFORMATION
  Report Type: 
  Country: None (occurrence: None)
  Receive Date: 20120525
  Receipt Date: 20120517
  Transmission Date: 20120825
  Serious: Yes (Other)
  Sender: FDA-Public Use
  Company Number: US-JNJFOC-20120412254

PATIENT
  Sex: Female
  Weight: 64.41 kg

DRUGS (4)
  1. NSAIDS [Concomitant]
  2. CELEBREX [Concomitant]
     Route: 048
     Dates: start: 20120131, end: 20120203
  3. XARELTO [Suspect]
     Indication: KNEE ARTHROPLASTY
     Route: 048
     Dates: start: 20120201
  4. XARELTO [Suspect]
     Indication: THROMBOSIS PROPHYLAXIS
     Route: 048
     Dates: start: 20120201

REACTIONS (1)
  - TRANSFUSION [None]
